FAERS Safety Report 23982985 (Version 1)
Quarter: 2024Q2

REPORT INFORMATION
  Report Type: Spontaneous
  Country: CA (occurrence: CA)
  Receive Date: 20240617
  Receipt Date: 20240617
  Transmission Date: 20240716
  Serious: Yes (Other)
  Sender: FDA-Public Use
  Company Number: CA-ANIPHARMA-2024-CA-002944

PATIENT
  Age: 70 Year
  Sex: Female
  Weight: 72.58 kg

DRUGS (5)
  1. ANASTROZOLE [Suspect]
     Active Substance: ANASTROZOLE
     Indication: Product used for unknown indication
     Route: 048
  2. QUETIAPINE [Suspect]
     Active Substance: QUETIAPINE
     Dosage: 1 DF DAILY
     Route: 048
  3. BUPROPION [Concomitant]
     Active Substance: BUPROPION
  4. FLUOXETINE [Concomitant]
     Active Substance: FLUOXETINE HYDROCHLORIDE
  5. TRAZODONE [Concomitant]
     Active Substance: TRAZODONE HYDROCHLORIDE

REACTIONS (9)
  - Suicidal ideation [Unknown]
  - Apathy [Unknown]
  - Balance disorder [Unknown]
  - Brain fog [Unknown]
  - Depression [Unknown]
  - Drug interaction [Unknown]
  - Exercise tolerance decreased [Unknown]
  - Fatigue [Unknown]
  - Malaise [Unknown]
